FAERS Safety Report 15290497 (Version 1)
Quarter: 2018Q3

REPORT INFORMATION
  Report Type: Spontaneous
  Country: US (occurrence: US)
  Receive Date: 20180804
  Receipt Date: 20180804
  Transmission Date: 20181010
  Serious: Yes (Disabling)
  Sender: FDA-Public Use
  Company Number: None

PATIENT
  Age: 31 Year
  Sex: Female
  Weight: 76.5 kg

DRUGS (10)
  1. TURMERIC [Concomitant]
     Active Substance: HERBALS\TURMERIC
  2. CLOROPOHYLL [Concomitant]
  3. BERBERINE [Concomitant]
     Active Substance: BERBERINE
  4. LMETHYLFOLATE [Concomitant]
  5. ZOLOFT [Concomitant]
     Active Substance: SERTRALINE HYDROCHLORIDE
  6. RECONISTAT [Concomitant]
  7. MELATONIN [Concomitant]
     Active Substance: MELATONIN
  8. VITAMIN D/K [Concomitant]
  9. CEPHALEXIN 500MG [Suspect]
     Active Substance: CEPHALEXIN
     Indication: INGROWING NAIL
     Dosage: ?          QUANTITY:1 TABLET(S);?
     Route: 048
     Dates: start: 20171227, end: 20180106
  10. CEPHALEXIN 500MG [Suspect]
     Active Substance: CEPHALEXIN
     Indication: NAIL INFECTION
     Dosage: ?          QUANTITY:1 TABLET(S);?
     Route: 048
     Dates: start: 20171227, end: 20180106

REACTIONS (10)
  - Erythema [None]
  - Complex regional pain syndrome [None]
  - Asthenia [None]
  - Frostbite [None]
  - Dyskinesia [None]
  - Burning sensation [None]
  - Skin swelling [None]
  - Hyperhidrosis [None]
  - Skin discolouration [None]
  - Quality of life decreased [None]

NARRATIVE: CASE EVENT DATE: 20180114
